FAERS Safety Report 7069659-7 (Version None)
Quarter: 2010Q4

REPORT INFORMATION
  Report Type: 
  Country: None (occurrence: None)
  Receive Date: 20101028
  Receipt Date: 20100319
  Transmission Date: 20110411
  Serious: No
  Sender: FDA-Public Use
  Company Number: US-WYE-H14292310

PATIENT
  Sex: Female

DRUGS (1)
  1. AMIODARONE [Suspect]
     Indication: VENTRICULAR TACHYCARDIA
     Route: 048
     Dates: start: 20100312, end: 20100318

REACTIONS (2)
  - NAUSEA [None]
  - VOMITING [None]
